FAERS Safety Report 20346453 (Version 1)
Quarter: 2022Q1

REPORT INFORMATION
  Report Type: Spontaneous
  Country: CN (occurrence: CN)
  Receive Date: 20220118
  Receipt Date: 20220118
  Transmission Date: 20220423
  Serious: Yes (Hospitalization)
  Sender: FDA-Public Use
  Company Number: CN-BAXTER-2022BAX000665

PATIENT
  Age: 70 Year
  Sex: Male

DRUGS (2)
  1. SODIUM CHLORIDE [Suspect]
     Active Substance: SODIUM CHLORIDE
     Indication: Medication dilution
     Route: 041
     Dates: start: 20211227, end: 20211230
  2. CILASTATIN SODIUM\IMIPENEM [Suspect]
     Active Substance: CILASTATIN SODIUM\IMIPENEM
     Indication: Anti-infective therapy
     Route: 041
     Dates: start: 20211227, end: 20211230

REACTIONS (2)
  - Delirium [Recovering/Resolving]
  - Adverse event [Recovering/Resolving]

NARRATIVE: CASE EVENT DATE: 20211230
